FAERS Safety Report 5613599-4 (Version None)
Quarter: 2008Q1

REPORT INFORMATION
  Report Type: 
  Country: None (occurrence: None)
  Receive Date: 20080205
  Receipt Date: 20080201
  Transmission Date: 20080703
  Serious: Yes (Death, Other)
  Sender: FDA-Public Use
  Company Number: PHFR2005GB02948

PATIENT
  Age: 45 Year
  Sex: Female

DRUGS (3)
  1. CLOZARIL [Suspect]
     Dosage: UNK, UNK
     Route: 048
     Dates: end: 20050418
  2. CLOZAPINE [Suspect]
     Dates: start: 20050418, end: 20051101
  3. ZOMETA [Concomitant]
     Indication: BREAST CANCER
     Route: 065

REACTIONS (6)
  - BONE LESION [None]
  - BREAST CANCER [None]
  - DEATH [None]
  - MENTAL IMPAIRMENT [None]
  - REFUSAL OF TREATMENT BY PATIENT [None]
  - SUICIDE ATTEMPT [None]
